FAERS Safety Report 7484523-7 (Version None)
Quarter: 2011Q2

REPORT INFORMATION
  Report Type: 
  Country: None (occurrence: None)
  Receive Date: 20110517
  Receipt Date: 20110509
  Transmission Date: 20111010
  Serious: No
  Sender: FDA-Public Use
  Company Number: US-BIOGENIDEC-2011BI014561

PATIENT
  Age: 53 Year
  Sex: Female

DRUGS (5)
  1. TYSABRI [Suspect]
     Route: 042
     Dates: start: 20030201, end: 20050201
  2. AVONEX [Concomitant]
     Indication: MULTIPLE SCLEROSIS
     Route: 030
     Dates: start: 20101209
  3. AVONEX [Concomitant]
     Route: 030
     Dates: start: 19971106, end: 20100108
  4. TYSABRI [Suspect]
     Indication: MULTIPLE SCLEROSIS
     Route: 042
     Dates: start: 20110222
  5. TYSABRI [Suspect]
     Route: 042
     Dates: start: 20100420, end: 20100923

REACTIONS (9)
  - ASTHENIA [None]
  - MULTIPLE SCLEROSIS RELAPSE [None]
  - MENTAL IMPAIRMENT [None]
  - VISUAL IMPAIRMENT [None]
  - GAIT DISTURBANCE [None]
  - FATIGUE [None]
  - MOBILITY DECREASED [None]
  - INFLUENZA [None]
  - DRY MOUTH [None]
